FAERS Safety Report 8367264-3 (Version None)
Quarter: 2012Q2

REPORT INFORMATION
  Report Type: 
  Country: None (occurrence: None)
  Receive Date: 20120517
  Receipt Date: 20120508
  Transmission Date: 20120825
  Serious: Yes (Hospitalization, Other)
  Sender: FDA-Public Use
  Company Number: US-ASTRAZENECA-2012SE29567

PATIENT
  Age: 44 Year
  Sex: Male
  Weight: 82.6 kg

DRUGS (2)
  1. XANAX [Concomitant]
  2. SEROQUEL [Suspect]
     Indication: BIPOLAR DISORDER
     Route: 048

REACTIONS (13)
  - INSOMNIA [None]
  - INTENTIONAL DRUG MISUSE [None]
  - HALLUCINATION [None]
  - ROAD TRAFFIC ACCIDENT [None]
  - WEIGHT DECREASED [None]
  - PALPITATIONS [None]
  - MULTIPLE FRACTURES [None]
  - DRUG ABUSE [None]
  - BACK PAIN [None]
  - THINKING ABNORMAL [None]
  - DEREALISATION [None]
  - INJURY [None]
  - SKIN INJURY [None]
